FAERS Safety Report 6756233-2 (Version None)
Quarter: 2010Q2

REPORT INFORMATION
  Report Type: 
  Country: None (occurrence: None)
  Receive Date: 20100604
  Receipt Date: 20100507
  Transmission Date: 20101027
  Serious: Yes (Hospitalization, Other)
  Sender: FDA-Public Use
  Company Number: CL-PFIZER INC-2010053081

PATIENT
  Age: 45 Year
  Sex: Female

DRUGS (4)
  1. ENBREL [Suspect]
     Indication: RHEUMATOID ARTHRITIS
     Dosage: 50 MG, WEEKLY
     Dates: start: 20080331, end: 20100408
  2. METHOTREXATE [Concomitant]
     Dosage: 10 MG
     Dates: start: 20080630, end: 20100408
  3. MEDROL [Concomitant]
     Dosage: 4 MG, 1X/DAY
  4. CELEBRA [Concomitant]
     Indication: ARTHRITIS
     Dosage: 200 MG, 1X/DAY
     Dates: start: 20070111

REACTIONS (4)
  - ATELECTASIS [None]
  - COUGH [None]
  - LUNG DISORDER [None]
  - PULMONARY TUBERCULOSIS [None]
